FAERS Safety Report 7489941-9 (Version None)
Quarter: 2011Q2

REPORT INFORMATION
  Report Type: 
  Country: None (occurrence: None)
  Receive Date: 20110512
  Receipt Date: 20110427
  Transmission Date: 20111010
  Serious: Yes (Other)
  Sender: FDA-Public Use
  Company Number: 029794

PATIENT
  Sex: Female

DRUGS (6)
  1. ALDACTONE [Concomitant]
  2. LASIX [Concomitant]
  3. WARFARIN SODIUM [Concomitant]
  4. KEPPRA [Suspect]
     Indication: EPILEPSY
     Dosage: (500 MG BID ORAL)
     Route: 048
     Dates: start: 20110101
  5. CARVEDILOL [Concomitant]
  6. LANSOPRAZOLE [Concomitant]

REACTIONS (9)
  - HYPERAMMONAEMIA [None]
  - RENAL IMPAIRMENT [None]
  - DEPRESSED LEVEL OF CONSCIOUSNESS [None]
  - PNEUMONIA [None]
  - PYREXIA [None]
  - PLEURAL EFFUSION [None]
  - PANCREATITIS CHRONIC [None]
  - CARDIAC FAILURE [None]
  - CARDIOMEGALY [None]
